FAERS Safety Report 9607496 (Version 2)
Quarter: 2013Q4

REPORT INFORMATION
  Report Type: Report from Study
  Country: JP (occurrence: JP)
  Receive Date: 20131009
  Receipt Date: 20131205
  Transmission Date: 20140711
  Serious: Yes (Hospitalization)
  Sender: FDA-Public Use
  Company Number: JP-JNJFOC-20131003115

PATIENT
  Age: 77 Year
  Sex: Female
  Weight: 49 kg

DRUGS (11)
  1. SIMPONI [Suspect]
     Indication: RHEUMATOID ARTHRITIS
     Route: 058
     Dates: start: 20121001, end: 20121001
  2. ENDOXAN [Suspect]
     Indication: INTERSTITIAL LUNG DISEASE
     Route: 048
     Dates: start: 20121127, end: 20130223
  3. PREDONINE [Suspect]
     Indication: INTERSTITIAL LUNG DISEASE
     Route: 065
     Dates: start: 20121209, end: 20121225
  4. PREDONINE [Suspect]
     Indication: INTERSTITIAL LUNG DISEASE
     Route: 065
     Dates: start: 20121106, end: 20121107
  5. PREDONINE [Suspect]
     Indication: INTERSTITIAL LUNG DISEASE
     Route: 065
     Dates: start: 20121108, end: 20121112
  6. PREDONINE [Suspect]
     Indication: INTERSTITIAL LUNG DISEASE
     Route: 065
     Dates: start: 20130130, end: 20130327
  7. PREDONINE [Suspect]
     Indication: INTERSTITIAL LUNG DISEASE
     Route: 065
     Dates: start: 20121226, end: 20130129
  8. PREDONINE [Suspect]
     Indication: INTERSTITIAL LUNG DISEASE
     Route: 065
     Dates: start: 20130328
  9. PREDONINE [Suspect]
     Indication: INTERSTITIAL LUNG DISEASE
     Route: 065
     Dates: start: 20121127, end: 20121208
  10. PREDONINE [Suspect]
     Indication: INTERSTITIAL LUNG DISEASE
     Route: 065
     Dates: start: 20121121, end: 20121126
  11. GASTER D [Concomitant]
     Indication: PROPHYLAXIS
     Route: 048
     Dates: start: 20121105

REACTIONS (6)
  - Interstitial lung disease [Recovering/Resolving]
  - Vulval ulceration [Recovered/Resolved]
  - Mouth ulceration [Recovered/Resolved]
  - Dementia [Not Recovered/Not Resolved]
  - Depressive symptom [Not Recovered/Not Resolved]
  - Cytomegalovirus infection [Recovered/Resolved]
